FAERS Safety Report 4495474-4 (Version None)
Quarter: 2004Q4

REPORT INFORMATION
  Report Type: 
  Country: None (occurrence: None)
  Receive Date: 20041108
  Receipt Date: 20041028
  Transmission Date: 20050328
  Serious: Yes (Death, Other)
  Sender: FDA-Public Use
  Company Number: DE-JNJFOC-20041100011

PATIENT
  Age: 94 Year
  Sex: Female

DRUGS (1)
  1. RISPERDAL [Suspect]
     Indication: DEMENTIA
     Dosage: 0.5MG-1MG DAILY
     Route: 049

REACTIONS (1)
  - PULMONARY EMBOLISM [None]
